FAERS Safety Report 4455797-1 (Version None)
Quarter: 2004Q3

REPORT INFORMATION
  Report Type: 
  Country: None (occurrence: None)
  Receive Date: 20040917
  Receipt Date: 20040903
  Transmission Date: 20050211
  Serious: No
  Sender: FDA-Public Use
  Company Number: 04P-151-0272717-00

PATIENT
  Sex: Female

DRUGS (2)
  1. AKINETON [Suspect]
     Indication: DYSKINESIA
     Dosage: 5 MG, ONCE, INTRAVENOUS
     Route: 042
     Dates: start: 20040722, end: 20040807
  2. METOCLOPRAMIDE [Suspect]

REACTIONS (5)
  - ABORTION INDUCED [None]
  - DRUG EXPOSURE DURING PREGNANCY [None]
  - DYSKINESIA [None]
  - MENSTRUATION IRREGULAR [None]
  - PREGNANCY [None]
